FAERS Safety Report 4800046-5 (Version None)
Quarter: 2005Q4

REPORT INFORMATION
  Report Type: 
  Country: None (occurrence: None)
  Receive Date: 20051017
  Receipt Date: 20051005
  Transmission Date: 20060501
  Serious: Yes (Other)
  Sender: FDA-Public Use
  Company Number: US-JNJFOC-20050902591

PATIENT
  Sex: Female
  Weight: 64.86 kg

DRUGS (6)
  1. REMICADE [Suspect]
     Route: 042
  2. REMICADE [Suspect]
     Indication: RHEUMATOID ARTHRITIS
     Route: 042
  3. METHOTREXATE [Concomitant]
     Indication: RHEUMATOID ARTHRITIS
     Dosage: DOSE: 7.5-10 MG Q WEEK
  4. FOLIC ACID [Concomitant]
     Indication: RHEUMATOID ARTHRITIS
  5. GLUCOGAN [Concomitant]
  6. CALCIUM GLUCONATE [Concomitant]
     Indication: RHEUMATOID ARTHRITIS

REACTIONS (2)
  - B-CELL LYMPHOMA [None]
  - OSTEOLYSIS [None]
